FAERS Safety Report 4494143-4 (Version None)
Quarter: 2004Q4

REPORT INFORMATION
  Report Type: 
  Country: None (occurrence: None)
  Receive Date: 20041104
  Receipt Date: 20041104
  Transmission Date: 20050328
  Serious: No
  Sender: FDA-Public Use
  Company Number: None

PATIENT
  Age: 68 Year
  Sex: Female
  Weight: 49.8957 kg

DRUGS (4)
  1. FOSAMAX [Suspect]
     Indication: OSTEOPOROSIS
     Dosage: 70 MG ONCE PER WEEK ORAL
     Route: 048
     Dates: start: 20000715, end: 20041031
  2. L-THYROXINE [Concomitant]
  3. LIPITOR [Concomitant]
  4. DIVOVAN [Concomitant]

REACTIONS (3)
  - HYPERSENSITIVITY [None]
  - PHOTOSENSITIVITY REACTION [None]
  - RASH MACULAR [None]
